FAERS Safety Report 9865359 (Version 1)
Quarter: 2014Q1

REPORT INFORMATION
  Report Type: Spontaneous
  Country: None (occurrence: US)
  Receive Date: 20140203
  Receipt Date: 20140203
  Transmission Date: 20141002
  Serious: No
  Sender: FDA-Public Use
  Company Number: US-ALLERGAN-1302787US

PATIENT
  Sex: Female

DRUGS (3)
  1. RESTASIS [Suspect]
     Indication: DRY EYE
     Dosage: 2 GTT, BID
     Route: 047
  2. REFRESH CELLUVISC SOLUTION [Suspect]
     Indication: DRY EYE
     Dosage: 1 GTT, PRN
     Route: 047
  3. REFRESH P.M. [Suspect]
     Indication: DRY EYE
     Dosage: UNK UNK, BID
     Route: 047

REACTIONS (6)
  - Rash pustular [Recovered/Resolved]
  - Eye infection [Unknown]
  - Incorrect product storage [Unknown]
  - Wrong technique in drug usage process [Unknown]
  - Eye inflammation [Unknown]
  - Erythema of eyelid [Recovered/Resolved]
